FAERS Safety Report 4887544-3 (Version None)
Quarter: 2006Q1

REPORT INFORMATION
  Report Type: 
  Country: None (occurrence: None)
  Receive Date: 20060123
  Receipt Date: 20060110
  Transmission Date: 20060701
  Serious: Yes (Other)
  Sender: FDA-Public Use
  Company Number: PHHO2006FR00724

PATIENT
  Age: 12 Year
  Sex: Male
  Weight: 27 kg

DRUGS (1)
  1. EXJADE [Suspect]
     Indication: HAEMOSIDEROSIS
     Dosage: 875 MG, QD
     Route: 048

REACTIONS (3)
  - APLASIA PURE RED CELL [None]
  - ECCHYMOSIS [None]
  - THROMBOCYTOPENIA [None]
